FAERS Safety Report 10523202 (Version 2)
Quarter: 2014Q4

REPORT INFORMATION
  Report Type: Spontaneous
  Country: FR (occurrence: FR)
  Receive Date: 20141016
  Receipt Date: 20141024
  Transmission Date: 20150528
  Serious: Yes (Hospitalization)
  Sender: FDA-Public Use
  Company Number: FR-PFIZER INC-2014283652

PATIENT
  Age: 91 Year
  Sex: Female

DRUGS (7)
  1. CORDARONE [Suspect]
     Active Substance: AMIODARONE HYDROCHLORIDE
     Dosage: 200 MG, DAILY
     Route: 048
     Dates: end: 20140904
  2. SPASFON [Concomitant]
     Active Substance: PHLOROGLUCINOL
     Dosage: UNK
  3. SPECIAFOLDINE [Concomitant]
     Active Substance: FOLIC ACID
     Dosage: UNK
  4. VOLTARENE [Concomitant]
     Active Substance: DICLOFENAC SODIUM
     Dosage: UNK
  5. LOXEN [Suspect]
     Active Substance: NICARDIPINE HYDROCHLORIDE
     Indication: HYPERTENSION
     Dosage: 50 MG, 2X/DAY
     Route: 048
     Dates: end: 20140904
  6. COVERSYL [Suspect]
     Active Substance: PERINDOPRIL
     Indication: HYPERTENSION
     Dosage: 5 MG, DAILY
     Route: 048
     Dates: end: 20140904
  7. STILNOX [Concomitant]
     Active Substance: ZOLPIDEM TARTRATE
     Dosage: UNK

REACTIONS (3)
  - Somnolence [Unknown]
  - Hypotension [Recovered/Resolved]
  - Pulmonary sepsis [Unknown]

NARRATIVE: CASE EVENT DATE: 20140902
